FAERS Safety Report 6732480-0 (Version None)
Quarter: 2010Q2

REPORT INFORMATION
  Report Type: 
  Country: None (occurrence: None)
  Receive Date: 20100519
  Receipt Date: 20100507
  Transmission Date: 20101027
  Serious: Yes (Hospitalization)
  Sender: FDA-Public Use
  Company Number: JP-BAYER-201012180BYL

PATIENT
  Age: 79 Year
  Sex: Female
  Weight: 39 kg

DRUGS (8)
  1. GLUCOBAY [Suspect]
     Indication: DIABETES MELLITUS
     Dosage: UNIT DOSE: 100 MG
     Route: 048
     Dates: end: 20100420
  2. DILTIAZEM HYDROCHLORIDE [Concomitant]
     Route: 065
  3. MENTORIES [Concomitant]
     Route: 048
  4. BENIDIPINE HYDROCHLORIDE [Concomitant]
     Route: 048
  5. DIOVAN [Concomitant]
     Route: 048
  6. FUROSEMIDE [Concomitant]
     Route: 065
  7. ALSETIN [Concomitant]
     Route: 048
  8. STANZOME OD [Concomitant]
     Route: 048

REACTIONS (2)
  - GASTROOESOPHAGEAL REFLUX DISEASE [None]
  - PNEUMATOSIS INTESTINALIS [None]
